FAERS Safety Report 5476554-3 (Version None)
Quarter: 2007Q3

REPORT INFORMATION
  Report Type: 
  Country: None (occurrence: None)
  Receive Date: 20070926
  Receipt Date: 20070517
  Transmission Date: 20080115
  Serious: Yes (Other)
  Sender: FDA-Public Use
  Company Number: 2007039534

PATIENT
  Sex: Male

DRUGS (1)
  1. ZYRTEC [Suspect]

REACTIONS (2)
  - DISORIENTATION [None]
  - PARAESTHESIA ORAL [None]
